FAERS Safety Report 21047038 (Version 4)
Quarter: 2023Q1

REPORT INFORMATION
  Report Type: Spontaneous
  Country: IT (occurrence: IT)
  Receive Date: 20220706
  Receipt Date: 20230103
  Transmission Date: 20230418
  Serious: Yes (Life-Threatening, Hospitalization, Disabling, Other)
  Sender: FDA-Public Use
  Company Number: IT-SFGROUP-202200037

PATIENT
  Age: 43 Year
  Sex: Female

DRUGS (8)
  1. THIOCOLCHICOSIDE [Suspect]
     Active Substance: THIOCOLCHICOSIDE
     Indication: Muscle contracture
     Dosage: UNK
     Route: 037
  2. THIOCOLCHICOSIDE [Suspect]
     Active Substance: THIOCOLCHICOSIDE
     Indication: Back pain
  3. LEVETIRACETAM [Suspect]
     Active Substance: LEVETIRACETAM
     Indication: Status epilepticus
     Dosage: 2000 MILLIGRAM, (THE PATIENT RECEIVED IV BOLUS OF LEVETIRACETAM 2000MG)
     Route: 042
  4. LEVETIRACETAM [Suspect]
     Active Substance: LEVETIRACETAM
     Dosage: 3000 MILLIGRAM, QD
     Route: 042
  5. LACOSAMIDE [Suspect]
     Active Substance: LACOSAMIDE
     Indication: Status epilepticus
     Dosage: 200 MILLIGRAM
     Route: 042
  6. LACOSAMIDE [Suspect]
     Active Substance: LACOSAMIDE
     Dosage: 200 MILLIGRAM, QD
     Route: 042
  7. PROPOFOL [Concomitant]
     Active Substance: PROPOFOL
     Indication: Status epilepticus
     Dosage: 2 MILLIGRAM/KILOGRAM/HOUR
     Route: 065
  8. MIDAZOLAM [Concomitant]
     Active Substance: MIDAZOLAM
     Indication: Product used for unknown indication
     Dosage: 10 MILLIGRAM
     Route: 042

REACTIONS (20)
  - Toxic encephalopathy [Not Recovered/Not Resolved]
  - Toxicity to various agents [Not Recovered/Not Resolved]
  - Vision blurred [Unknown]
  - Memory impairment [Not Recovered/Not Resolved]
  - Loss of consciousness [Recovered/Resolved]
  - Sensory loss [Unknown]
  - Incorrect route of product administration [Unknown]
  - Product administration error [Not Recovered/Not Resolved]
  - Drug ineffective [Unknown]
  - Status epilepticus [Not Recovered/Not Resolved]
  - Encephalitis toxic [Recovered/Resolved]
  - Amnesia [Not Recovered/Not Resolved]
  - Oxygen saturation decreased [Unknown]
  - Medication error [Unknown]
  - Drug resistance [Unknown]
  - Retrograde amnesia [Unknown]
  - Attention deficit hyperactivity disorder [Unknown]
  - Cognitive disorder [Unknown]
  - Intentional product misuse [Unknown]
  - Product use issue [Recovered/Resolved]
